FAERS Safety Report 9152349 (Version 1)
Quarter: 2013Q1

REPORT INFORMATION
  Report Type: Spontaneous
  Country: US (occurrence: US)
  Receive Date: 20130308
  Receipt Date: 20130308
  Transmission Date: 20140127
  Serious: No
  Sender: FDA-Public Use
  Company Number: US-ASTRAZENECA-2013SE07872

PATIENT
  Age: 86 Year
  Sex: Female
  Weight: 45.4 kg

DRUGS (7)
  1. NEXIUM [Suspect]
     Indication: ULCER HAEMORRHAGE
     Route: 048
     Dates: start: 201211
  2. LISINOPRIL [Suspect]
     Indication: BLOOD PRESSURE ABNORMAL
     Route: 048
  3. METOPROLOL [Suspect]
     Indication: BLOOD PRESSURE ABNORMAL
     Route: 048
  4. CRESTOR [Suspect]
     Indication: BLOOD CHOLESTEROL ABNORMAL
     Route: 048
  5. SYNTHROID [Concomitant]
     Indication: THYROID DISORDER
  6. COSOPT [Concomitant]
     Indication: CATARACT
  7. ISOSORBIDE [Concomitant]
     Indication: BLOOD PRESSURE ABNORMAL

REACTIONS (3)
  - Abnormal loss of weight [Unknown]
  - Alopecia [Unknown]
  - Intentional drug misuse [Unknown]
